FAERS Safety Report 15909842 (Version 1)
Quarter: 2019Q1

REPORT INFORMATION
  Report Type: Spontaneous
  Country: US (occurrence: US)
  Receive Date: 20190204
  Receipt Date: 20190204
  Transmission Date: 20190417
  Serious: No
  Sender: FDA-Public Use
  Company Number: US-ABBVIE-18K-163-2295828-00

PATIENT
  Sex: Female

DRUGS (1)
  1. HUMIRA [Suspect]
     Active Substance: ADALIMUMAB
     Indication: EXPOSURE VIA FATHER
     Route: 064

REACTIONS (2)
  - Foetal exposure during pregnancy [Unknown]
  - Jaundice neonatal [Recovered/Resolved]

NARRATIVE: CASE EVENT DATE: 201712
